FAERS Safety Report 24040596 (Version 8)
Quarter: 2024Q4

REPORT INFORMATION
  Report Type: Spontaneous
  Country: US (occurrence: US)
  Receive Date: 20240702
  Receipt Date: 20241122
  Transmission Date: 20250114
  Serious: No
  Sender: PFIZER
  Company Number: US-PFIZER INC-202400202740

PATIENT
  Age: 9 Year
  Sex: Male
  Weight: 30 kg

DRUGS (2)
  1. GENOTROPIN [Suspect]
     Active Substance: SOMATROPIN
     Dosage: 2 MG, ALTERNATE DAY (2 MG ALTERNATING WITH 2.2 MG, 7 DAYS PER WEEK)
     Route: 058
     Dates: start: 202406
  2. GENOTROPIN [Suspect]
     Active Substance: SOMATROPIN
     Dosage: 2.2 MG, ALTERNATE DAY (2 MG ALTERNATING WITH 2.2 MG, 7 DAYS PER WEEK)
     Route: 058
     Dates: start: 202406

REACTIONS (10)
  - Drug dose omission by device [Unknown]
  - Incorrect dose administered by device [Unknown]
  - Poor quality device used [Unknown]
  - Wrong technique in device usage process [Unknown]
  - Device use confusion [Unknown]
  - Product communication issue [Unknown]
  - Device mechanical issue [Unknown]
  - Device leakage [Unknown]
  - Device physical property issue [Unknown]
  - Device information output issue [Unknown]

NARRATIVE: CASE EVENT DATE: 20240601
